FAERS Safety Report 8018552-1 (Version None)
Quarter: 2012Q1

REPORT INFORMATION
  Report Type: 
  Country: None (occurrence: None)
  Receive Date: 20120103
  Receipt Date: 20111229
  Transmission Date: 20120608
  Serious: Yes (Other)
  Sender: FDA-Public Use
  Company Number: DE-SANOFI-AVENTIS-2011SA079020

PATIENT
  Age: 42 Year
  Sex: Female
  Weight: 100 kg

DRUGS (5)
  1. TIMOLOL MALEATE [Concomitant]
     Route: 065
  2. ARAVA [Suspect]
     Route: 048
     Dates: start: 20110620
  3. TORSEMIDE [Concomitant]
     Indication: HYPERTENSION
     Route: 048
  4. LEVOTHYROXINE SODIUM [Concomitant]
     Route: 048
  5. PANTOPRAZOLE [Concomitant]
     Indication: GASTRIC DISORDER
     Route: 048

REACTIONS (2)
  - LICHEN SCLEROSUS [None]
  - VULVAL DISORDER [None]
